FAERS Safety Report 11317969 (Version 2)
Quarter: 2015Q3

REPORT INFORMATION
  Report Type: Spontaneous
  Country: US (occurrence: US)
  Receive Date: 20150728
  Receipt Date: 20150917
  Transmission Date: 20151125
  Serious: Yes (Hospitalization)
  Sender: FDA-Public Use
  Company Number: US-BAYER-2015-384651

PATIENT
  Age: 46 Year
  Sex: Female
  Weight: 41.72 kg

DRUGS (5)
  1. GADAVIST [Suspect]
     Active Substance: GADOBUTROL
     Indication: PANCREATIC DISORDER
  2. BENADRYL [Suspect]
     Active Substance: DIPHENHYDRAMINE HYDROCHLORIDE
     Indication: ABDOMINAL PAIN
     Dosage: 25 MG, ONCE
     Route: 042
     Dates: start: 20150715, end: 20150715
  3. GADAVIST [Suspect]
     Active Substance: GADOBUTROL
     Indication: NUCLEAR MAGNETIC RESONANCE IMAGING ABDOMINAL
     Dosage: 4.5 ML, ONCE (1.5 ML PER SECOND)
     Route: 042
     Dates: start: 20150715, end: 20150715
  4. GADAVIST [Suspect]
     Active Substance: GADOBUTROL
     Indication: PANCREATIC DUCT DILATATION
  5. BENADRYL [Suspect]
     Active Substance: DIPHENHYDRAMINE HYDROCHLORIDE
     Indication: COUGH

REACTIONS (4)
  - Abdominal pain [None]
  - Cough [Recovered/Resolved]
  - Off label use [Recovered/Resolved]
  - Injection site rash [Recovered/Resolved]

NARRATIVE: CASE EVENT DATE: 20150715
